FAERS Safety Report 5612053-3 (Version None)
Quarter: 2008Q1

REPORT INFORMATION
  Report Type: 
  Country: None (occurrence: None)
  Receive Date: 20080204
  Receipt Date: 20080124
  Transmission Date: 20080703
  Serious: Yes (Death, Other)
  Sender: FDA-Public Use
  Company Number: HQWYE425226JUL04

PATIENT
  Sex: Female

DRUGS (5)
  1. PREMPRO [Suspect]
  2. MEDROXYPROGESTERONE [Suspect]
  3. ESTRATEST [Suspect]
  4. PROVERA [Suspect]
  5. PREMARIN [Suspect]

REACTIONS (1)
  - BREAST CANCER [None]
